FAERS Safety Report 6136883-7 (Version None)
Quarter: 2009Q1

REPORT INFORMATION
  Report Type: 
  Country: None (occurrence: None)
  Receive Date: 20090330
  Receipt Date: 20090316
  Transmission Date: 20090719
  Serious: Yes (Other)
  Sender: FDA-Public Use
  Company Number: FR-GENENTECH-279892

PATIENT
  Sex: Female

DRUGS (2)
  1. XOLAIR [Suspect]
     Indication: ASTHMA
     Dosage: 300 MG, Q2W
  2. XOLAIR [Suspect]
     Dosage: UNK
     Dates: start: 20090301

REACTIONS (2)
  - ASTHMA [None]
  - DYSPNOEA [None]
